FAERS Safety Report 20786541 (Version 2)
Quarter: 2022Q2

REPORT INFORMATION
  Report Type: Spontaneous
  Country: IR (occurrence: IR)
  Receive Date: 20220505
  Receipt Date: 20220506
  Transmission Date: 20220721
  Serious: Yes (Life-Threatening, Hospitalization, Other)
  Sender: FDA-Public Use
  Company Number: None

PATIENT
  Age: 4 Year
  Sex: Female

DRUGS (2)
  1. PREDNISOLONE [Suspect]
     Active Substance: PREDNISOLONE
     Indication: Facial paralysis
     Dosage: UNK
     Route: 065
  2. ACYCLOVIR [Suspect]
     Active Substance: ACYCLOVIR
     Indication: Facial paralysis
     Dosage: UNK
     Route: 065

REACTIONS (8)
  - Hyperaldosteronism [Unknown]
  - Posterior reversible encephalopathy syndrome [Recovered/Resolved]
  - Condition aggravated [Recovered/Resolved]
  - Status epilepticus [Recovered/Resolved]
  - Renal artery stenosis [Unknown]
  - Facial paralysis [Not Recovered/Not Resolved]
  - Hypertension [Recovered/Resolved]
  - Off label use [Unknown]
